FAERS Safety Report 20876417 (Version 2)
Quarter: 2022Q2

REPORT INFORMATION
  Report Type: Spontaneous
  Country: PL (occurrence: PL)
  Receive Date: 20220526
  Receipt Date: 20220526
  Transmission Date: 20220721
  Serious: Yes (Death, Other)
  Sender: FDA-Public Use
  Company Number: PL-PFIZER INC-202200727631

PATIENT
  Sex: Male

DRUGS (10)
  1. DOXORUBICIN HYDROCHLORIDE [Suspect]
     Active Substance: DOXORUBICIN HYDROCHLORIDE
     Indication: Hodgkin^s disease
  2. ETOPOSIDE [Suspect]
     Active Substance: ETOPOSIDE
  3. PREDNISONE [Suspect]
     Active Substance: PREDNISONE
  4. PROCARBAZINE [Suspect]
     Active Substance: PROCARBAZINE
  5. BLEOMYCIN [Suspect]
     Active Substance: BLEOMYCIN SULFATE
  6. VINBLASTINE [Suspect]
     Active Substance: VINBLASTINE
  7. DACARBAZINE [Suspect]
     Active Substance: DACARBAZINE
  8. MECHLORETHAMINE [Suspect]
     Active Substance: MECHLORETHAMINE
  9. VINCRISTINE [Suspect]
     Active Substance: VINCRISTINE
  10. CYCLOPHOSPHAMIDE [Suspect]
     Active Substance: CYCLOPHOSPHAMIDE

REACTIONS (4)
  - Leukaemia [Fatal]
  - Second primary malignancy [Unknown]
  - Acute myeloid leukaemia [Unknown]
  - Allogenic stem cell transplantation [Unknown]
